FAERS Safety Report 5277884-0 (Version None)
Quarter: 2007Q1

REPORT INFORMATION
  Report Type: 
  Country: None (occurrence: None)
  Receive Date: 20070327
  Receipt Date: 20070316
  Transmission Date: 20070707
  Serious: Yes (Other)
  Sender: FDA-Public Use
  Company Number: US-PFIZER INC-2007021062

PATIENT
  Sex: Female
  Weight: 72.6 kg

DRUGS (2)
  1. LIPITOR [Suspect]
     Indication: BLOOD CHOLESTEROL INCREASED
     Dosage: FREQ:DAILY
  2. TOPROL-XL [Concomitant]
     Indication: HYPERTENSION

REACTIONS (2)
  - ABASIA [None]
  - JOINT STIFFNESS [None]
